FAERS Safety Report 5703743-2 (Version None)
Quarter: 2008Q2

REPORT INFORMATION
  Report Type: 
  Country: None (occurrence: None)
  Receive Date: 20080413
  Receipt Date: 20080407
  Transmission Date: 20081010
  Serious: Yes (Other)
  Sender: FDA-Public Use
  Company Number: PHHY2008BE04854

PATIENT
  Age: 25 Year
  Sex: Male

DRUGS (2)
  1. RITALIN [Suspect]
     Dosage: 20 MG
  2. RITALIN [Suspect]
     Dosage: 60 MG
     Dates: start: 20070101

REACTIONS (2)
  - ABNORMAL BEHAVIOUR [None]
  - PSYCHOTIC DISORDER [None]
